FAERS Safety Report 9742119 (Version 1)
Quarter: 2013Q4

REPORT INFORMATION
  Report Type: Spontaneous
  Country: US (occurrence: US)
  Receive Date: 20131210
  Receipt Date: 20131210
  Transmission Date: 20140711
  Serious: No
  Sender: FDA-Public Use
  Company Number: US-ENDO PHARMACEUTICALS INC.-CARI20120012

PATIENT
  Age: 42 Year
  Sex: Female

DRUGS (5)
  1. CARISOPRODOL TABLETS 350MG [Suspect]
     Indication: MUSCLE SPASMS
     Route: 048
     Dates: start: 20121014, end: 20121014
  2. CARISOPRODOL TABLETS 350MG [Suspect]
     Route: 048
     Dates: start: 20121013, end: 20121013
  3. CARISOPRODOL TABLETS 350MG [Suspect]
     Route: 048
     Dates: start: 20121012, end: 20121012
  4. CARISOPRODOL TABLETS 350MG [Suspect]
     Route: 048
     Dates: start: 20121015, end: 20121016
  5. SOMA [Concomitant]
     Indication: MUSCLE SPASMS
     Route: 048
     Dates: end: 201210

REACTIONS (5)
  - Coeliac disease [Recovering/Resolving]
  - Pyrexia [Recovered/Resolved]
  - Lymphadenopathy [Recovering/Resolving]
  - Feeling of body temperature change [Recovering/Resolving]
  - Pain [Recovering/Resolving]
